FAERS Safety Report 6148276-7 (Version None)
Quarter: 2009Q2

REPORT INFORMATION
  Report Type: 
  Country: None (occurrence: None)
  Receive Date: 20090408
  Receipt Date: 20090330
  Transmission Date: 20091009
  Serious: Yes (Other)
  Sender: FDA-Public Use
  Company Number: US-ELI_LILLY_AND_COMPANY-US200904000647

PATIENT
  Sex: Female

DRUGS (11)
  1. EVISTA [Suspect]
     Dosage: 60 MG, UNKNOWN
     Route: 065
     Dates: start: 20080630
  2. PROZAC [Concomitant]
     Dosage: 20 MG, DAILY (1/D)
     Route: 065
  3. CLONAZEPAM [Concomitant]
     Dosage: 0.1 MG, DAILY (1/D)
     Route: 065
  4. LEVOTHYROXINE [Concomitant]
     Dosage: 112 MG, DAILY (1/D)
     Route: 065
  5. ATENOLOL [Concomitant]
     Dosage: 100 MG, DAILY (1/D)
     Route: 065
  6. SINEMET /NET/ [Concomitant]
     Dosage: UNK, 3/D
     Route: 065
  7. MIRAPEX [Concomitant]
     Dosage: 0.5 MG, 3/D
     Route: 065
  8. CALCIUM W/VITAMIN D NOS [Concomitant]
     Dosage: UNK, 2/D
     Route: 065
  9. OXYGEN [Concomitant]
     Dosage: UNK, UNKNOWN
     Route: 065
     Dates: start: 20080301
  10. AGGRENOX [Concomitant]
     Dosage: UNK, 2/D
     Route: 048
     Dates: start: 20090211
  11. NAPROSYN [Concomitant]
     Dosage: 500 MG, AS NEEDED
     Route: 065

REACTIONS (1)
  - TRANSIENT ISCHAEMIC ATTACK [None]
